FAERS Safety Report 18813972 (Version 3)
Quarter: 2021Q1

REPORT INFORMATION
  Report Type: Report from Study
  Country: IL (occurrence: IL)
  Receive Date: 20210201
  Receipt Date: 20210218
  Transmission Date: 20210419
  Serious: Yes (Hospitalization)
  Sender: FDA-Public Use
  Company Number: IL-ROCHE-2756617

PATIENT
  Age: 77 Year
  Sex: Female
  Weight: 73.7 kg

DRUGS (20)
  1. BEVACIZUMAB. [Suspect]
     Active Substance: BEVACIZUMAB
     Indication: HEPATOCELLULAR CARCINOMA
     Dosage: DAY 1 OF EACH 21 DAY CYCLE.?DATE OF MOST RECENT DOSE OF BEVACIZUMAB, 1150 MG PRIOR TO AE: 15/DEC/202
     Route: 042
     Dates: start: 20201125
  2. ACAMOL (ISRAEL) [Concomitant]
     Indication: PAIN
     Route: 048
  3. NEXIUM [Concomitant]
     Active Substance: ESOMEPRAZOLE MAGNESIUM
     Indication: GASTRITIS
     Route: 048
     Dates: start: 20201001
  4. AMPICILLIN [Concomitant]
     Active Substance: AMPICILLIN
     Indication: ENCEPHALOPATHY
     Route: 042
     Dates: start: 20210110, end: 20210110
  5. PREDNISONE. [Concomitant]
     Active Substance: PREDNISONE
     Route: 048
     Dates: start: 20210113, end: 20210114
  6. PREDNISONE. [Concomitant]
     Active Substance: PREDNISONE
     Route: 048
     Dates: start: 20210115
  7. PREDNISONE. [Concomitant]
     Active Substance: PREDNISONE
  8. ATEZOLIZUMAB. [Suspect]
     Active Substance: ATEZOLIZUMAB
     Indication: HEPATOCELLULAR CARCINOMA
     Dosage: DAY 1 OF EACH 21 DAY CYCLE.?DATE OF MOST RECENT DOSE OF ATEZOLIZUMAB, 1200 MG PRIOR TO AE: 15/DEC/20
     Route: 041
     Dates: start: 20201125
  9. PROPANOLOL [Concomitant]
     Active Substance: PROPRANOLOL HYDROCHLORIDE
     Indication: HYPERTENSION
     Route: 048
     Dates: start: 20150501
  10. ALDACTONE [Concomitant]
     Active Substance: SPIRONOLACTONE
     Indication: HYPERTENSION
     Route: 048
     Dates: start: 20201001
  11. DEXAMETAZONA [Concomitant]
     Indication: ENCEPHALOPATHY
     Route: 042
     Dates: start: 20210110, end: 20210111
  12. FUSID (ISRAEL) [Concomitant]
     Indication: HYPERTENSION
     Route: 048
     Dates: start: 202012
  13. MTIG 7192A [Suspect]
     Active Substance: TIRAGOLUMAB
     Indication: HEPATOCELLULAR CARCINOMA
     Dosage: DAY 1 OF EACH 21 DAY CYCLE.?DATE OF MOST RECENT DOSE OF MTIG 7192A, 600 MG PRIOR TO AE: 15/DEC/2020
     Route: 042
     Dates: start: 20201125
  14. AMPICILLIN [Concomitant]
     Active Substance: AMPICILLIN
     Route: 042
     Dates: start: 20210111, end: 20210111
  15. AMLODIPINE [Concomitant]
     Active Substance: AMLODIPINE BESYLATE
     Indication: HYPERTENSION
     Route: 048
     Dates: start: 20210111
  16. KEFTRIAXON [Concomitant]
     Indication: ENCEPHALOPATHY
     Route: 042
     Dates: start: 20210110, end: 20210110
  17. KONAKION [Concomitant]
     Active Substance: PHYTONADIONE
     Indication: ENCEPHALOPATHY
     Route: 048
     Dates: start: 20210110, end: 20210110
  18. PREDNISONE. [Concomitant]
     Active Substance: PREDNISONE
     Indication: HEPATIC ENZYME INCREASED
     Route: 048
     Dates: start: 20210111, end: 20210112
  19. PREDNISONE. [Concomitant]
     Active Substance: PREDNISONE
     Route: 048
     Dates: start: 20210105, end: 20210109
  20. CETOMACROGOL [Concomitant]
     Active Substance: COSMETICS
     Indication: LIPOMA
     Route: 061

REACTIONS (1)
  - Confusional state [Recovered/Resolved with Sequelae]

NARRATIVE: CASE EVENT DATE: 20210123
